FAERS Safety Report 26142645 (Version 1)
Quarter: 2025Q4

REPORT INFORMATION
  Report Type: Spontaneous
  Country: US (occurrence: US)
  Receive Date: 20251211
  Receipt Date: 20251211
  Transmission Date: 20260117
  Serious: No
  Sender: SANOFI AVENTIS
  Company Number: US-SA-2025SA367811

PATIENT
  Sex: Female

DRUGS (19)
  1. DUPIXENT [Suspect]
     Active Substance: DUPILUMAB
     Indication: Dyspnoea
     Dosage: 300 MG, QOW
     Route: 058
  2. ALBUTEROL [Concomitant]
     Active Substance: ALBUTEROL
  3. ALLOPURINOL [Concomitant]
     Active Substance: ALLOPURINOL
  4. ALPRAZOLAM [Concomitant]
     Active Substance: ALPRAZOLAM
  5. BREZTRI [Concomitant]
     Active Substance: BUDESONIDE\FORMOTEROL\GLYCOPYRROLATE
  6. CYANOCOBALAMIN [Concomitant]
     Active Substance: CYANOCOBALAMIN
  7. DOXAZOSIN [Concomitant]
     Active Substance: DOXAZOSIN MESYLATE
  8. ESTRADIOL [Concomitant]
     Active Substance: ESTRADIOL
  9. FLONASE ALLERGY RELIEF [Concomitant]
     Active Substance: FLUTICASONE PROPIONATE
  10. GABAPENTIN [Concomitant]
     Active Substance: GABAPENTIN
  11. HYDROXYCHLOROQUINE [Concomitant]
     Active Substance: HYDROXYCHLOROQUINE
  12. IPRATROPIUM [Concomitant]
     Active Substance: IPRATROPIUM
  13. LASIX [Concomitant]
     Active Substance: FUROSEMIDE
  14. MONTELUKAST [Concomitant]
     Active Substance: MONTELUKAST
  15. MUCINEX [Concomitant]
     Active Substance: GUAIFENESIN
  16. OLMESARTAN [Concomitant]
     Active Substance: OLMESARTAN
  17. PANTOPRAZOLE [Concomitant]
     Active Substance: PANTOPRAZOLE
  18. TEMAZEPAM [Concomitant]
     Active Substance: TEMAZEPAM
  19. TRAMADOL [Concomitant]
     Active Substance: TRAMADOL

REACTIONS (2)
  - Pruritus [Unknown]
  - Rash [Unknown]
